FAERS Safety Report 8292442-1 (Version None)
Quarter: 2012Q2

REPORT INFORMATION
  Report Type: 
  Country: None (occurrence: None)
  Receive Date: 20120417
  Receipt Date: 20120404
  Transmission Date: 20120825
  Serious: Yes (Other)
  Sender: FDA-Public Use
  Company Number: JP-ROCHE-1057933

PATIENT
  Sex: Female
  Weight: 49 kg

DRUGS (10)
  1. AVASTIN [Suspect]
     Indication: RECTAL CANCER RECURRENT
     Route: 041
     Dates: start: 20111219, end: 20120127
  2. OXALIPLATIN [Concomitant]
     Indication: RECTAL CANCER METASTATIC
     Dosage: DOSAGE IS UNCERTAIN.
     Route: 041
     Dates: start: 20101001, end: 20110101
  3. XELODA [Suspect]
     Indication: RECTAL CANCER METASTATIC
     Route: 048
     Dates: start: 20101001, end: 20110101
  4. FLUOROURACIL [Suspect]
     Dosage: FOLFIRI REGIMEN
     Route: 041
     Dates: start: 20111219, end: 20120101
  5. TOPOTECAN [Concomitant]
     Indication: RECTAL CANCER RECURRENT
     Dosage: FOLFIRI REGIMEN
     Route: 041
     Dates: start: 20111219, end: 20120126
  6. FLUOROURACIL [Suspect]
     Indication: RECTAL CANCER RECURRENT
     Dosage: FOLFIRI REGIMEN
     Route: 040
     Dates: start: 20111219, end: 20120126
  7. TS-1 [Concomitant]
     Indication: RECTAL CANCER RECURRENT
     Dosage: DOSAGE IS UNCERTAIN.
     Route: 048
     Dates: start: 20110501, end: 20110901
  8. PANITUMUMAB [Concomitant]
     Indication: RECTAL CANCER RECURRENT
     Dosage: DOSAGE IS UNCERTAIN.
     Route: 041
     Dates: start: 20110908, end: 20111101
  9. ERBITUX [Suspect]
     Indication: RECTAL CANCER METASTATIC
     Dosage: DOSAGE IS UNCERTAIN.
     Route: 041
     Dates: start: 20101001, end: 20110101
  10. ISOVORIN [Concomitant]
     Indication: RECTAL CANCER RECURRENT
     Dosage: FOLFIRI REGIMEN
     Route: 041
     Dates: start: 20111219, end: 20120126

REACTIONS (7)
  - RETINAL VEIN OCCLUSION [None]
  - ACNE [None]
  - HYPERTENSION [None]
  - GASTROOESOPHAGEAL REFLUX DISEASE [None]
  - PAIN [None]
  - DIARRHOEA [None]
  - RETINAL HAEMORRHAGE [None]
